FAERS Safety Report 20307407 (Version 1)
Quarter: 2022Q1

REPORT INFORMATION
  Report Type: Report from Study
  Country: IT (occurrence: IT)
  Receive Date: 20220107
  Receipt Date: 20220107
  Transmission Date: 20220424
  Serious: Yes (Other)
  Sender: FDA-Public Use
  Company Number: IT-AUROBINDO-AUR-APL-2021-054299

PATIENT

DRUGS (4)
  1. LETROZOLE [Suspect]
     Active Substance: LETROZOLE
     Indication: Perivascular epithelioid cell tumour
     Dosage: UNK
     Route: 065
  2. TRIPTORELIN [Suspect]
     Active Substance: TRIPTORELIN
     Indication: Perivascular epithelioid cell tumour
     Dosage: 3.75 MILLIGRAM (EVERY 28 DAYS.)
     Route: 030
  3. SIROLIMUS [Suspect]
     Active Substance: SIROLIMUS
     Indication: Perivascular epithelioid cell tumour
     Dosage: UNK
     Route: 065
  4. EXEMESTANE [Concomitant]
     Active Substance: EXEMESTANE
     Indication: Perivascular epithelioid cell tumour
     Dosage: UNK
     Route: 065

REACTIONS (1)
  - Disease progression [Unknown]
